FAERS Safety Report 20818049 (Version 1)
Quarter: 2022Q2

REPORT INFORMATION
  Report Type: Spontaneous
  Country: US (occurrence: US)
  Receive Date: 20220512
  Receipt Date: 20220512
  Transmission Date: 20220721
  Serious: No
  Sender: FDA-Public Use
  Company Number: US-PFIZER INC-202101494229

PATIENT
  Age: 9 Decade
  Sex: Male

DRUGS (1)
  1. FLAGYL [Suspect]
     Active Substance: METRONIDAZOLE\METRONIDAZOLE HYDROCHLORIDE
     Indication: Clostridium difficile infection
     Dosage: 500 MG, 3X/DAY

REACTIONS (1)
  - Drug ineffective [Unknown]
